FAERS Safety Report 16019816 (Version 3)
Quarter: 2019Q3

REPORT INFORMATION
  Report Type: Report from Study
  Country: US (occurrence: US)
  Receive Date: 20190228
  Receipt Date: 20190701
  Transmission Date: 20191004
  Serious: No
  Sender: FDA-Public Use
  Company Number: PHEH2019US008755

PATIENT
  Sex: Female

DRUGS (1)
  1. ENTRESTO [Suspect]
     Active Substance: SACUBITRIL\VALSARTAN
     Indication: PRODUCT USED FOR UNKNOWN INDICATION
     Dosage: 1 DF (24MG/ 26 MG), ONE-HALF TABLET TWICE DAILY
     Route: 065
     Dates: start: 20190312, end: 20190613

REACTIONS (2)
  - Dizziness [Unknown]
  - Hypotension [Unknown]
